FAERS Safety Report 9775159 (Version 1)
Quarter: 2013Q4

REPORT INFORMATION
  Report Type: Spontaneous
  Country: US (occurrence: US)
  Receive Date: 20131220
  Receipt Date: 20131220
  Transmission Date: 20140711
  Serious: Yes (Other)
  Sender: FDA-Public Use
  Company Number: US-TEVA-451003USA

PATIENT
  Sex: Female

DRUGS (1)
  1. COPAXONE [Suspect]
     Dates: end: 201306

REACTIONS (4)
  - Cervical dysplasia [Unknown]
  - Multiple sclerosis [Unknown]
  - Injection site pain [Unknown]
  - Drug ineffective [Unknown]
